FAERS Safety Report 10412685 (Version 1)
Quarter: 2014Q3

REPORT INFORMATION
  Report Type: Spontaneous
  Country: US (occurrence: US)
  Receive Date: 20140827
  Receipt Date: 20140827
  Transmission Date: 20150326
  Serious: No
  Sender: FDA-Public Use
  Company Number: US-009507513-1408USA011011

PATIENT
  Sex: Female

DRUGS (4)
  1. LYRICA [Concomitant]
     Active Substance: PREGABALIN
  2. GLIPIZIDE. [Concomitant]
     Active Substance: GLIPIZIDE
  3. ZOCOR [Suspect]
     Active Substance: SIMVASTATIN
     Route: 048
  4. METFORMIN [Concomitant]
     Active Substance: METFORMIN HYDROCHLORIDE
     Dosage: 1MG A DAY

REACTIONS (1)
  - Blood glucose increased [Unknown]
